FAERS Safety Report 19408461 (Version 2)
Quarter: 2021Q2

REPORT INFORMATION
  Report Type: Spontaneous
  Country: US (occurrence: US)
  Receive Date: 20210612
  Receipt Date: 20210629
  Transmission Date: 20210717
  Serious: No
  Sender: FDA-Public Use
  Company Number: US-009507513-2105USA006813

PATIENT
  Age: 75 Year
  Sex: Female
  Weight: 71.2 kg

DRUGS (2)
  1. JANUVIA [Suspect]
     Active Substance: SITAGLIPTIN PHOSPHATE
     Indication: TYPE 2 DIABETES MELLITUS
     Dosage: 50 MILLIGRAM ONCE DAILY
     Route: 048
     Dates: start: 202010, end: 202103
  2. JANUVIA [Suspect]
     Active Substance: SITAGLIPTIN PHOSPHATE
     Dosage: 100 MILLIGRAM ONCE DAILY
     Route: 048
     Dates: start: 20210318

REACTIONS (3)
  - Product dose omission issue [Unknown]
  - Glycosylated haemoglobin increased [Not Recovered/Not Resolved]
  - Product dispensing error [Unknown]

NARRATIVE: CASE EVENT DATE: 202103
